FAERS Safety Report 17031346 (Version 1)
Quarter: 2019Q4

REPORT INFORMATION
  Report Type: Spontaneous
  Country: JP (occurrence: JP)
  Receive Date: 20191114
  Receipt Date: 20191114
  Transmission Date: 20200122
  Serious: Yes (Hospitalization, Other)
  Sender: FDA-Public Use
  Company Number: JP-GLAXOSMITHKLINE-JP2019JPN205002

PATIENT
  Age: 38 Year
  Sex: Female

DRUGS (3)
  1. LAMICTAL [Suspect]
     Active Substance: LAMOTRIGINE
     Indication: DEPRESSION
     Dosage: 25 MG, 1D
     Route: 048
     Dates: start: 201311
  2. PREDNISOLONE. [Concomitant]
     Active Substance: PREDNISOLONE
     Indication: STEVENS-JOHNSON SYNDROME
     Dosage: 1 MG/KG, 1D
  3. LEVOFLOXACIN OPHTHALMIC SOLUTION [Concomitant]
     Active Substance: LEVOFLOXACIN
     Indication: CORNEAL DISORDER
     Dosage: UNK
     Route: 047

REACTIONS (22)
  - Pyrexia [Unknown]
  - Rash [Recovering/Resolving]
  - Malaise [Unknown]
  - Vulvar erosion [Recovering/Resolving]
  - Conjunctivitis [Recovering/Resolving]
  - Stevens-Johnson syndrome [Unknown]
  - Lip erythema [Recovering/Resolving]
  - Oral pain [Unknown]
  - Erythema [Unknown]
  - Oral mucosa erosion [Recovering/Resolving]
  - Product use in unapproved indication [Unknown]
  - Eye discharge [Unknown]
  - Oropharyngeal pain [Unknown]
  - Conjunctival hyperaemia [Recovering/Resolving]
  - Oral mucosal erythema [Recovering/Resolving]
  - Corneal disorder [Unknown]
  - Conjunctival degeneration [Recovering/Resolving]
  - Feeding disorder [Unknown]
  - Oral mucosal eruption [Recovering/Resolving]
  - Lip erosion [Recovering/Resolving]
  - Vulvovaginal erythema [Recovering/Resolving]
  - Lymphadenopathy [Unknown]

NARRATIVE: CASE EVENT DATE: 201311
